FAERS Safety Report 21348290 (Version 1)
Quarter: 2022Q3

REPORT INFORMATION
  Report Type: Spontaneous
  Country: US (occurrence: None)
  Receive Date: 20220916
  Receipt Date: 20220916
  Transmission Date: 20221027
  Serious: Yes (Other)
  Sender: FDA-Public Use
  Company Number: None

PATIENT
  Age: 78 Year
  Sex: Female
  Weight: 66.68 kg

DRUGS (1)
  1. REVLIMID [Suspect]
     Active Substance: LENALIDOMIDE
     Indication: Plasma cell myeloma
     Dosage: FREQUENCY : DAILY X21 DAYS?
     Route: 048
     Dates: start: 20220826, end: 20220915

REACTIONS (4)
  - Peripheral swelling [None]
  - Joint swelling [None]
  - Thrombosis [None]
  - Therapy interrupted [None]

NARRATIVE: CASE EVENT DATE: 20220915
